FAERS Safety Report 10084899 (Version 1)
Quarter: 2014Q2

REPORT INFORMATION
  Report Type: Spontaneous
  Country: US (occurrence: None)
  Receive Date: 20140404
  Receipt Date: 20140404
  Transmission Date: 20141212
  Serious: Yes (Hospitalization)
  Sender: FDA-Public Use
  Company Number: 1346028

PATIENT
  Age: 50 Year
  Sex: Female

DRUGS (5)
  1. PERJETA [Suspect]
     Indication: BREAST CANCER
     Dosage: LOADING DOSE (840 MG), UNKNOWN
  2. HERCEPTIN (TRASTUZUMAB) [Suspect]
     Indication: BREAST CANCER
     Dosage: LOADING DOSE (8 MG/KG), UNKNOWN
  3. CARBOPLATIN [Concomitant]
  4. TAXOTERE (DOCETAXEL) [Concomitant]
  5. MORPHINE [Concomitant]

REACTIONS (2)
  - Mucosal inflammation [None]
  - Anxiety [None]
